FAERS Safety Report 10500674 (Version 4)
Quarter: 2014Q4

REPORT INFORMATION
  Report Type: Spontaneous
  Country: US (occurrence: US)
  Receive Date: 20141006
  Receipt Date: 20141113
  Transmission Date: 20150528
  Serious: Yes (Other)
  Sender: FDA-Public Use
  Company Number: US-ALLERGAN-1418344US

PATIENT
  Sex: Female

DRUGS (3)
  1. LATISSE [Suspect]
     Active Substance: BIMATOPROST
     Indication: GROWTH OF EYELASHES
     Dosage: UNK
     Route: 061
  2. LATISSE [Suspect]
     Active Substance: BIMATOPROST
     Dosage: UNK
     Route: 061
     Dates: start: 201407
  3. LATISSE [Suspect]
     Active Substance: BIMATOPROST
     Dosage: UNK
     Route: 061
     Dates: start: 2010

REACTIONS (6)
  - Drug ineffective [Unknown]
  - Hair growth abnormal [Not Recovered/Not Resolved]
  - Neoplasm malignant [Unknown]
  - Wrong technique in drug usage process [Unknown]
  - Trichorrhexis [Unknown]
  - Madarosis [Not Recovered/Not Resolved]
